FAERS Safety Report 7211315-6 (Version None)
Quarter: 2011Q1

REPORT INFORMATION
  Report Type: 
  Country: None (occurrence: None)
  Receive Date: 20110105
  Receipt Date: 20101227
  Transmission Date: 20110831
  Serious: Yes (Other)
  Sender: FDA-Public Use
  Company Number: US-RB-018052-11

PATIENT
  Age: 69 Year
  Sex: Male

DRUGS (1)
  1. MUCINEX DM [Suspect]
     Dosage: PATIENT TOOK 10 TABLETS YESTERDAY AND 2 TODAY.
     Route: 048

REACTIONS (3)
  - OVERDOSE [None]
  - ASTHENIA [None]
  - HYPERHIDROSIS [None]
